FAERS Safety Report 5251487-6 (Version None)
Quarter: 2007Q1

REPORT INFORMATION
  Report Type: 
  Country: None (occurrence: None)
  Receive Date: 20070228
  Receipt Date: 20060607
  Transmission Date: 20070707
  Serious: No
  Sender: FDA-Public Use
  Company Number: US-GLAXOSMITHKLINE-A0605844A

PATIENT
  Age: 48 Year
  Sex: Female

DRUGS (4)
  1. LAMICTAL [Suspect]
     Indication: BIPOLAR DISORDER
     Dosage: 300MG PER DAY
     Route: 048
     Dates: start: 20040914
  2. ESKALITH CR [Concomitant]
     Indication: BIPOLAR DISORDER
     Dosage: 450MG TWICE PER DAY
     Route: 048
     Dates: start: 20000101
  3. LEVOXYL [Concomitant]
     Indication: HYPOTHYROIDISM
     Dosage: 25MCG PER DAY
     Route: 048
     Dates: start: 20050826
  4. RISPERDAL [Concomitant]
     Indication: BIPOLAR DISORDER
     Dates: start: 20050628

REACTIONS (2)
  - PHOTOPHOBIA [None]
  - SUNBURN [None]
